FAERS Safety Report 9029929 (Version 1)
Quarter: 2013Q1

REPORT INFORMATION
  Report Type: Spontaneous
  Country: US (occurrence: US)
  Receive Date: 20130124
  Receipt Date: 20130124
  Transmission Date: 20140127
  Serious: Yes (Death, Hospitalization)
  Sender: FDA-Public Use
  Company Number: US-B.I. PHARMACEUTICALS,INC./RIDGEFIELD-2013-BI-01712GD

PATIENT
  Age: 83 Year
  Sex: Male

DRUGS (1)
  1. PRADAXA [Suspect]
     Indication: ATRIAL FIBRILLATION
     Dosage: 300 MG

REACTIONS (9)
  - Respiratory failure [Fatal]
  - Renal failure acute [Fatal]
  - Pneumonia [Fatal]
  - Anaemia [Fatal]
  - Haemothorax [Unknown]
  - Pulmonary contusion [Unknown]
  - Rib fracture [Unknown]
  - Road traffic accident [Unknown]
  - Ecchymosis [Unknown]
